FAERS Safety Report 11385680 (Version 8)
Quarter: 2016Q4

REPORT INFORMATION
  Report Type: Report from Study
  Country: US (occurrence: US)
  Receive Date: 20150817
  Receipt Date: 20161020
  Transmission Date: 20170206
  Serious: Yes (Other)
  Sender: FDA-Public Use
  Company Number: PHEH2015US015388

PATIENT
  Age: 5 Year
  Sex: Female
  Weight: 21 kg

DRUGS (5)
  1. TAMIFLU [Concomitant]
     Active Substance: OSELTAMIVIR PHOSPHATE
     Indication: PRODUCT USED FOR UNKNOWN INDICATION
     Route: 065
  2. TEGRETOL [Concomitant]
     Active Substance: CARBAMAZEPINE
     Indication: PRODUCT USED FOR UNKNOWN INDICATION
     Route: 065
  3. AFINITOR [Suspect]
     Active Substance: EVEROLIMUS
     Indication: ANGIOMYOLIPOMA
     Dosage: 5 MG, UNK
     Route: 048
     Dates: start: 20141017
  4. AFINITOR [Suspect]
     Active Substance: EVEROLIMUS
     Indication: ASTROCYTOMA, LOW GRADE
     Dosage: 5 MG, DAILY
     Route: 048
     Dates: start: 20141101
  5. MULTI VITAMIN [Concomitant]
     Active Substance: VITAMINS
     Indication: PRODUCT USED FOR UNKNOWN INDICATION
     Route: 065

REACTIONS (8)
  - Pyrexia [Unknown]
  - Cough [Unknown]
  - Hyper HDL cholesterolaemia [Not Recovered/Not Resolved]
  - Pneumonia [Unknown]
  - Blood cholesterol increased [Not Recovered/Not Resolved]
  - Mouth ulceration [Unknown]
  - Blood triglycerides increased [Unknown]
  - Vomiting [Unknown]

NARRATIVE: CASE EVENT DATE: 20150806
